FAERS Safety Report 13581280 (Version 3)
Quarter: 2018Q2

REPORT INFORMATION
  Report Type: Spontaneous
  Country: US (occurrence: US)
  Receive Date: 20170525
  Receipt Date: 20180508
  Transmission Date: 20180711
  Serious: No
  Sender: FDA-Public Use
  Company Number: US-PFIZER INC-2017228133

PATIENT
  Age: 57 Year
  Sex: Female

DRUGS (1)
  1. XELJANZ XR [Suspect]
     Active Substance: TOFACITINIB CITRATE
     Dosage: 11 MG, UNK (CUTTING THE TOFACITINIB CITRATE IN HALF)

REACTIONS (5)
  - Pain in extremity [Unknown]
  - Wrong technique in product usage process [Unknown]
  - Fatigue [Unknown]
  - Limb discomfort [Unknown]
  - Musculoskeletal stiffness [Unknown]
